FAERS Safety Report 8987181 (Version 1)
Quarter: 2012Q4

REPORT INFORMATION
  Report Type: 
  Country: US (occurrence: US)
  Receive Date: 20121227
  Receipt Date: 20121227
  Transmission Date: 20130627
  Serious: No
  Sender: FDA-Public Use
  Company Number: US-BAYER-2012-135294

PATIENT

DRUGS (1)
  1. MAGNEVIST [Suspect]
     Dosage: 14 ml, UNK
     Dates: start: 20121220, end: 20121220

REACTIONS (2)
  - Urticaria [None]
  - Pruritus [None]
